FAERS Safety Report 10215670 (Version 1)
Quarter: 2014Q2

REPORT INFORMATION
  Report Type: Spontaneous
  Country: US (occurrence: US)
  Receive Date: 20140604
  Receipt Date: 20140604
  Transmission Date: 20141212
  Serious: Yes (Other)
  Sender: FDA-Public Use
  Company Number: US-SHIRE-US201402559

PATIENT
  Sex: Female
  Weight: 58.96 kg

DRUGS (2)
  1. VYVANSE [Suspect]
     Indication: ATTENTION DEFICIT/HYPERACTIVITY DISORDER
     Dosage: UNK, UNKNOWN
     Route: 048
     Dates: start: 2009
  2. MINASTRIN 24 FE [Concomitant]
     Indication: CONTRACEPTION
     Dosage: UNK (1MG/20MCG), 1X/DAY:QD
     Route: 065

REACTIONS (3)
  - Nasal septum disorder [Recovered/Resolved]
  - Mood swings [Recovered/Resolved]
  - Agitation [Recovered/Resolved]
